FAERS Safety Report 18338196 (Version 1)
Quarter: 2020Q4

REPORT INFORMATION
  Report Type: Spontaneous
  Country: US (occurrence: US)
  Receive Date: 20201001
  Receipt Date: 20201001
  Transmission Date: 20210113
  Serious: No
  Sender: FDA-Public Use
  Company Number: None

PATIENT
  Age: 37 Year
  Sex: Male
  Weight: 78.75 kg

DRUGS (1)
  1. BUPRENORPHINE AND NALOXONE SUBLINGUAL FILM 8MG/2MG [Suspect]
     Active Substance: BUPRENORPHINE\NALOXONE
     Indication: DEPENDENCE
     Dosage: ?          QUANTITY:30 FILM;?
     Route: 060
     Dates: start: 20200928, end: 20201001

REACTIONS (4)
  - Abdominal discomfort [None]
  - Product substitution issue [None]
  - Drug withdrawal syndrome [None]
  - Sleep disorder [None]

NARRATIVE: CASE EVENT DATE: 20200929
